FAERS Safety Report 8377201-3 (Version None)
Quarter: 2012Q2

REPORT INFORMATION
  Report Type: 
  Country: None (occurrence: None)
  Receive Date: 20120522
  Receipt Date: 20120510
  Transmission Date: 20120825
  Serious: No
  Sender: FDA-Public Use
  Company Number: US-ASTRAZENECA-2012SE21852

PATIENT
  Age: 61 Year
  Sex: Male

DRUGS (6)
  1. KLONOPIN [Concomitant]
  2. SYMBICORT [Suspect]
     Dosage: 1 PUFF PER DAY
     Route: 055
     Dates: start: 20120325
  3. NAMENDA [Concomitant]
  4. ARICEPT [Concomitant]
  5. SYMBICORT [Suspect]
     Dosage: 160/4.5 ?G, 2 PUFFS BID
     Route: 055
     Dates: start: 20111001
  6. SYMBICORT [Suspect]
     Dosage: 1 PUFF PER DAY
     Route: 055
     Dates: start: 20120310

REACTIONS (5)
  - INSOMNIA [None]
  - OFF LABEL USE [None]
  - INTENTIONAL DRUG MISUSE [None]
  - MENTAL IMPAIRMENT [None]
  - CONFUSIONAL STATE [None]
